FAERS Safety Report 10640002 (Version 1)
Quarter: 2014Q4

REPORT INFORMATION
  Report Type: Spontaneous
  Country: US (occurrence: US)
  Receive Date: 20141209
  Receipt Date: 20141209
  Transmission Date: 20150529
  Serious: Yes (Hospitalization, Other)
  Sender: FDA-Public Use
  Company Number: US-DRREDDYS-USA/USA/14/0044790

PATIENT
  Age: 55 Year
  Sex: Male

DRUGS (1)
  1. VENLAFAXINE HYDROCHLORIDE ER CAPSULES, 37.5 MG (BASE) [Suspect]
     Active Substance: VENLAFAXINE HYDROCHLORIDE
     Indication: PRODUCT USED FOR UNKNOWN INDICATION
     Dosage: TOTAL DOSE WAS APPROXIMATELY 6000 MG
     Route: 048

REACTIONS (3)
  - Intentional overdose [Unknown]
  - Lactic acidosis [Recovered/Resolved]
  - Suicide attempt [None]
